FAERS Safety Report 18267514 (Version 1)
Quarter: 2020Q3

REPORT INFORMATION
  Report Type: Spontaneous
  Country: US (occurrence: US)
  Receive Date: 20200915
  Receipt Date: 20200915
  Transmission Date: 20201103
  Serious: Yes (Other)
  Sender: FDA-Public Use
  Company Number: US-SUPERNUS PHARMACEUTICALS, INC.-2020SUP00261

PATIENT
  Sex: Female

DRUGS (1)
  1. TROKENDI XR [Suspect]
     Active Substance: TOPIRAMATE

REACTIONS (9)
  - Hypoaesthesia [Unknown]
  - Ageusia [Unknown]
  - Paraesthesia [Unknown]
  - Brain injury [Not Recovered/Not Resolved]
  - Dysphemia [Unknown]
  - Diarrhoea [Unknown]
  - Weight decreased [Recovered/Resolved]
  - Therapeutic product effect decreased [Recovered/Resolved]
  - Aphasia [Unknown]
